FAERS Safety Report 18490495 (Version 1)
Quarter: 2020Q4

REPORT INFORMATION
  Report Type: Spontaneous
  Country: FR (occurrence: FR)
  Receive Date: 20201111
  Receipt Date: 20201111
  Transmission Date: 20210114
  Serious: Yes (Death, Life-Threatening)
  Sender: FDA-Public Use
  Company Number: FR-TEVA-2020-FR-1846782

PATIENT
  Age: 70 Year
  Sex: Male
  Weight: 86 kg

DRUGS (3)
  1. FLUOROURACILE [Suspect]
     Active Substance: FLUOROURACIL
     Indication: RECTAL CANCER
     Dosage: 650 MG
     Route: 041
     Dates: start: 20201013
  2. IRINOTECAN ACCORD 20 MG/ML, SOLUTION A DILUER POUR PERFUSION [Concomitant]
  3. OXALIPLATINE ACCORD 5 MG/ML, SOLUTION A DILUER POUR PERFUSION [Concomitant]
     Active Substance: OXALIPLATIN

REACTIONS (1)
  - Death [Fatal]

NARRATIVE: CASE EVENT DATE: 20201013
